FAERS Safety Report 17040750 (Version 1)
Quarter: 2019Q4

REPORT INFORMATION
  Report Type: Spontaneous
  Country: US (occurrence: US)
  Receive Date: 20191117
  Receipt Date: 20191117
  Transmission Date: 20200122
  Serious: No
  Sender: FDA-Public Use
  Company Number: US-JNJFOC-20191110638

PATIENT
  Age: 67 Year
  Sex: Male
  Weight: 90.8 kg

DRUGS (1)
  1. TYLENOL EXTRA STRENGTH [Suspect]
     Active Substance: ACETAMINOPHEN
     Indication: INFLAMMATION
     Dosage: ONCE A DAY
     Route: 048
     Dates: start: 20190131

REACTIONS (3)
  - Product use in unapproved indication [Unknown]
  - Swelling face [Not Recovered/Not Resolved]
  - Erythema [Recovered/Resolved]

NARRATIVE: CASE EVENT DATE: 20190131
